FAERS Safety Report 6191729-6 (Version None)
Quarter: 2009Q2

REPORT INFORMATION
  Report Type: 
  Country: None (occurrence: None)
  Receive Date: 20090515
  Receipt Date: 20081203
  Transmission Date: 20091009
  Serious: Yes (Other)
  Sender: FDA-Public Use
  Company Number: US-PFIZER INC-2008156830

PATIENT
  Sex: Female
  Weight: 76.19 kg

DRUGS (17)
  1. CHANTIX [Suspect]
     Indication: SMOKING CESSATION THERAPY
     Dosage: FREQUENCY: EVERY DAY;
     Route: 048
     Dates: start: 20070101
  2. IMDUR [Concomitant]
     Dosage: UNK
     Route: 048
  3. AGGRENOX [Concomitant]
     Dosage: UNK
     Route: 048
  4. METOPROLOL TARTRATE [Concomitant]
     Dosage: UNK
     Route: 048
  5. LISINOPRIL [Concomitant]
     Dosage: UNK
     Route: 048
  6. NOVOLOG [Concomitant]
     Dosage: UNK
  7. LANTUS [Concomitant]
     Dosage: UNK
  8. ACTOS [Concomitant]
     Dosage: UNK
     Route: 048
  9. VYTORIN [Concomitant]
  10. ATIVAN [Concomitant]
     Dosage: UNK
     Route: 048
  11. CYMBALTA [Concomitant]
     Dosage: UNK
     Route: 048
  12. SINGULAIR [Concomitant]
     Dosage: UNK
     Route: 048
  13. NEXIUM [Concomitant]
     Dosage: UNK
     Route: 048
  14. ACETYLSALICYLIC ACID [Concomitant]
     Dosage: UNK
     Route: 048
  15. TRAMADOL HYDROCHLORIDE [Concomitant]
     Dosage: UNK
     Route: 048
  16. LASIX [Concomitant]
     Dosage: UNK
     Route: 048
  17. OXYGEN [Concomitant]
     Dosage: UNK

REACTIONS (5)
  - ANGINA PECTORIS [None]
  - ARTERIAL OCCLUSIVE DISEASE [None]
  - PALPITATIONS [None]
  - PANIC ATTACK [None]
  - URTICARIA [None]
